FAERS Safety Report 13576886 (Version 2)
Quarter: 2017Q2

REPORT INFORMATION
  Report Type: Spontaneous
  Country: US (occurrence: US)
  Receive Date: 20170524
  Receipt Date: 20170620
  Transmission Date: 20170830
  Serious: Yes (Other)
  Sender: FDA-Public Use
  Company Number: US-ASTRAZENECA-2017SE54073

PATIENT
  Age: 838 Month
  Sex: Female
  Weight: 39.5 kg

DRUGS (1)
  1. TUDORZA PRESSAIR [Suspect]
     Active Substance: ACLIDINIUM BROMIDE
     Indication: CHRONIC OBSTRUCTIVE PULMONARY DISEASE
     Route: 055

REACTIONS (5)
  - Small cell lung cancer [Recovered/Resolved]
  - Abdominal discomfort [Unknown]
  - Malaise [Unknown]
  - Device malfunction [Unknown]
  - Back disorder [Unknown]

NARRATIVE: CASE EVENT DATE: 201601
